FAERS Safety Report 7117394-9 (Version None)
Quarter: 2010Q4

REPORT INFORMATION
  Report Type: 
  Country: None (occurrence: None)
  Receive Date: 20101122
  Receipt Date: 20100723
  Transmission Date: 20110411
  Serious: Yes (Hospitalization)
  Sender: FDA-Public Use
  Company Number: PHHY2010US53303

PATIENT
  Sex: Female

DRUGS (17)
  1. TEGRETOL [Suspect]
     Dosage: UNK
     Dates: end: 20100601
  2. BETASERON [Suspect]
     Indication: RELAPSING-REMITTING MULTIPLE SCLEROSIS
     Dosage: UNK
     Route: 058
     Dates: start: 19940204, end: 20020210
  3. BETASERON [Suspect]
     Dosage: 4 MIU EVERY OTHER DAY
     Route: 058
     Dates: start: 20081212, end: 20090316
  4. BETASERON [Suspect]
     Dosage: 2 MIU, EVERY OTHER DAY
     Route: 058
     Dates: start: 20090319
  5. BETASERON [Suspect]
     Dosage: 2 MIU, EVERY OTHER DAY
     Route: 058
     Dates: end: 20100131
  6. BETASERON [Suspect]
     Dosage: 4 MIU EVERY OTHER DAY
     Route: 058
     Dates: start: 20100206, end: 20100330
  7. BETASERON [Suspect]
     Dosage: 2 MIU EVERY OTHER DAY
     Route: 058
     Dates: start: 20100505, end: 20100601
  8. ZOFRAN [Suspect]
     Indication: NAUSEA
     Dosage: 8 MG, PRN
     Dates: end: 20100101
  9. PROZAC [Suspect]
     Dosage: 80 MG, UNK
  10. PROZAC [Suspect]
     Dosage: 60 MG, UNK
     Dates: start: 20100601
  11. BACLOFEN [Concomitant]
     Dosage: UNK
  12. ZANAFLEX [Concomitant]
     Dosage: UNK
  13. KLONOPIN [Concomitant]
     Dosage: UNK
  14. TYLENOL (CAPLET) [Concomitant]
     Indication: ARTHRITIS
     Dosage: UNK
  15. COPAXONE [Concomitant]
     Dosage: UNK
     Dates: start: 20020305, end: 20050305
  16. COPAXONE [Concomitant]
     Dosage: UNK
     Dates: start: 20050601, end: 20081123
  17. REBIF [Concomitant]
     Dosage: UNK

REACTIONS (10)
  - BLOOD SODIUM DECREASED [None]
  - CONSTIPATION [None]
  - HEADACHE [None]
  - HYPOAESTHESIA [None]
  - INTERVERTEBRAL DISC PROTRUSION [None]
  - MULTIPLE SCLEROSIS RELAPSE [None]
  - NAUSEA [None]
  - OCULAR DISCOMFORT [None]
  - PARAESTHESIA [None]
  - SUICIDAL IDEATION [None]
